FAERS Safety Report 5048974-2 (Version None)
Quarter: 2006Q3

REPORT INFORMATION
  Report Type: 
  Country: None (occurrence: None)
  Receive Date: 20060712
  Receipt Date: 20051025
  Transmission Date: 20061208
  Serious: No
  Sender: FDA-Public Use
  Company Number: US-GLAXOSMITHKLINE-A0579793A

PATIENT
  Age: 25 Year
  Sex: Female

DRUGS (9)
  1. IMITREX [Suspect]
     Indication: MIGRAINE
     Dosage: 50MG SINGLE DOSE
     Route: 048
  2. RANITIDINE [Concomitant]
     Dosage: 150MG TWICE PER DAY
  3. PROPRANOLOL [Concomitant]
     Dosage: 10MG TWICE PER DAY
  4. NEURONTIN [Concomitant]
     Dosage: 600MG TWICE PER DAY
  5. WELLBUTRIN [Concomitant]
     Dosage: 200MG TWICE PER DAY
  6. SINGULAIR [Concomitant]
     Dosage: 10MG PER DAY
  7. CLONAZEPAM [Concomitant]
     Dosage: 1MG AT NIGHT
  8. MICROGESTIN FE [Concomitant]
  9. CELEXA [Concomitant]
     Dosage: 40MG PER DAY

REACTIONS (4)
  - MUSCLE TIGHTNESS [None]
  - NECK PAIN [None]
  - PAIN IN JAW [None]
  - PALPITATIONS [None]
